FAERS Safety Report 17127766 (Version 1)
Quarter: 2019Q4

REPORT INFORMATION
  Report Type: Spontaneous
  Country: US (occurrence: US)
  Receive Date: 20191209
  Receipt Date: 20191209
  Transmission Date: 20200122
  Serious: No
  Sender: FDA-Public Use
  Company Number: US-ICU MEDICAL, INC.-ICU2019US00139

PATIENT

DRUGS (2)
  1. LACTATED RINGERS SOLUTION [Suspect]
     Active Substance: CALCIUM CHLORIDE\POTASSIUM CHLORIDE\SODIUM CHLORIDE\SODIUM LACTATE
     Indication: LAPAROSCOPY
     Dosage: 3000 MILLILITER
     Route: 065
     Dates: start: 20190524
  2. EPINEPHRINE. [Concomitant]
     Active Substance: EPINEPHRINE
     Indication: LAPAROSCOPY

REACTIONS (2)
  - Expired product administered [Unknown]
  - No adverse event [Unknown]
